FAERS Safety Report 4978318-3 (Version None)
Quarter: 2006Q2

REPORT INFORMATION
  Report Type: 
  Country: None (occurrence: None)
  Receive Date: 20060420
  Receipt Date: 20060220
  Transmission Date: 20061013
  Serious: Yes (Life-Threatening, Other)
  Sender: FDA-Public Use
  Company Number: JP-BRISTOL-MYERS SQUIBB COMPANY-13289269

PATIENT
  Age: 73 Year
  Sex: Male

DRUGS (9)
  1. TAXOL [Suspect]
     Indication: LUNG ADENOCARCINOMA
     Route: 041
     Dates: start: 20060131, end: 20060131
  2. PARAPLATIN [Suspect]
     Indication: LUNG ADENOCARCINOMA
     Route: 041
     Dates: start: 20060131, end: 20060131
  3. MORPHINE SULFATE [Concomitant]
     Route: 048
     Dates: start: 20060105
  4. SPELEAR [Concomitant]
     Route: 048
     Dates: start: 20060130
  5. MAGMITT [Concomitant]
     Route: 048
     Dates: start: 20060118
  6. PURSENNID [Concomitant]
     Route: 048
     Dates: start: 20060118
  7. DECADRON [Concomitant]
     Indication: PREMEDICATION
     Route: 042
     Dates: start: 20060130, end: 20060130
  8. RESTAMIN [Concomitant]
     Indication: PREMEDICATION
     Route: 048
     Dates: start: 20060130, end: 20060130
  9. KYTRIL [Concomitant]
     Indication: PREMEDICATION
     Route: 042
     Dates: start: 20060130, end: 20060130

REACTIONS (1)
  - SICK SINUS SYNDROME [None]
